FAERS Safety Report 16285911 (Version 2)
Quarter: 2019Q3

REPORT INFORMATION
  Report Type: Spontaneous
  Country: US (occurrence: US)
  Receive Date: 20190508
  Receipt Date: 20190722
  Transmission Date: 20191004
  Serious: No
  Sender: FDA-Public Use
  Company Number: US-MYLANLABS-2019M1040715

PATIENT
  Sex: Female
  Weight: 57 kg

DRUGS (1)
  1. FENTANYL. [Suspect]
     Active Substance: FENTANYL
     Indication: PRODUCT USED FOR UNKNOWN INDICATION
     Dosage: UNK
     Route: 062
     Dates: end: 2017

REACTIONS (4)
  - Weight decreased [Unknown]
  - Wrong technique in product usage process [Recovered/Resolved]
  - Feeding disorder [Unknown]
  - Product prescribing error [Unknown]
